FAERS Safety Report 9663450 (Version 1)
Quarter: 2013Q4

REPORT INFORMATION
  Report Type: Report from Study
  Country: US (occurrence: US)
  Receive Date: 20131101
  Receipt Date: 20131101
  Transmission Date: 20140711
  Serious: Yes (Other)
  Sender: FDA-Public Use
  Company Number: US-JNJFOC-20131017326

PATIENT
  Age: 67 Year
  Sex: Female
  Weight: 78.02 kg

DRUGS (1)
  1. REMICADE [Suspect]
     Indication: RHEUMATOID ARTHRITIS
     Route: 042
     Dates: end: 20131015

REACTIONS (1)
  - Lung neoplasm malignant [Not Recovered/Not Resolved]
